FAERS Safety Report 8418858-8 (Version None)
Quarter: 2012Q2

REPORT INFORMATION
  Report Type: 
  Country: None (occurrence: None)
  Receive Date: 20120607
  Receipt Date: 20120529
  Transmission Date: 20120825
  Serious: Yes (Hospitalization)
  Sender: FDA-Public Use
  Company Number: AU-ROCHE-1073350

PATIENT
  Sex: Male
  Weight: 63.469 kg

DRUGS (7)
  1. FOLIC ACID [Concomitant]
     Dates: start: 20090723
  2. CLONAZEPAM [Suspect]
     Indication: MYOCLONUS
     Route: 048
     Dates: start: 20120411, end: 20120411
  3. FISH OIL [Concomitant]
     Route: 048
     Dates: start: 20100628
  4. ACETAMINOPHEN [Concomitant]
     Dosage: DOSE: 500 MG TO 1 GRAM
     Route: 048
     Dates: start: 20100407
  5. MEGA B [Concomitant]
     Dates: start: 20090723
  6. ARICEPT [Concomitant]
     Indication: DEMENTIA ALZHEIMER'S TYPE
     Dates: start: 20090723
  7. VALSARTAN [Concomitant]
     Indication: HYPERTENSION
     Route: 048
     Dates: start: 20120331

REACTIONS (1)
  - DEMENTIA [None]
